FAERS Safety Report 8128610 (Version 3)
Quarter: 2015Q4

REPORT INFORMATION
  Report Type: Spontaneous
  Country: US (occurrence: US)
  Receive Date: 20110909
  Receipt Date: 20151230
  Transmission Date: 20160305
  Serious: Yes (Other)
  Sender: FDA-Public Use
  Company Number: US-BAYER-2011-026579

PATIENT
  Age: 66 Year
  Sex: Female

DRUGS (3)
  1. MIRENA [Suspect]
     Active Substance: LEVONORGESTREL
     Indication: UTERINE CERVICAL EXFOLIATION
     Dosage: 20 MCG/24HR, CONT
     Route: 015
  2. MIRENA [Suspect]
     Active Substance: LEVONORGESTREL
     Indication: UTERINE CERVICAL EXFOLIATION
     Dosage: 20 MCG/24HR, CONT
     Route: 015
     Dates: end: 201511
  3. MIRENA [Suspect]
     Active Substance: LEVONORGESTREL
     Indication: UTERINE CERVICAL EXFOLIATION
     Dosage: 20 MCG/24HR, CONT
     Route: 015
     Dates: start: 20151216

REACTIONS (11)
  - Genital haemorrhage [Recovered/Resolved]
  - Withdrawal bleed [Recovered/Resolved]
  - Hormone level abnormal [None]
  - Abdominal pain [Unknown]
  - Procedural pain [Recovered/Resolved]
  - Vaginal haemorrhage [Not Recovered/Not Resolved]
  - Abdominal pain [Recovered/Resolved]
  - Abdominal pain [Recovered/Resolved]
  - Off label use of device [None]
  - Post procedural haemorrhage [Recovered/Resolved]
  - Abdominal pain [None]

NARRATIVE: CASE EVENT DATE: 201511
